FAERS Safety Report 4400872-0 (Version None)
Quarter: 2004Q3

REPORT INFORMATION
  Report Type: 
  Country: None (occurrence: None)
  Receive Date: 20040907
  Receipt Date: 20030715
  Transmission Date: 20050211
  Serious: No
  Sender: FDA-Public Use
  Company Number: US-BRISTOL-MYERS SQUIBB COMPANY-12326062

PATIENT
  Age: 95 Year
  Sex: Female

DRUGS (2)
  1. COUMADIN [Suspect]
     Indication: HEART RATE IRREGULAR
     Route: 048
  2. ZANTAC [Concomitant]

REACTIONS (1)
  - INTERNATIONAL NORMALISED RATIO INCREASED [None]
